FAERS Safety Report 12198899 (Version 1)
Quarter: 2016Q1

REPORT INFORMATION
  Report Type: Spontaneous
  Country: BR (occurrence: BR)
  Receive Date: 20160322
  Receipt Date: 20160322
  Transmission Date: 20160526
  Serious: Yes (Other)
  Sender: FDA-Public Use
  Company Number: BR-ROCHE-1728081

PATIENT
  Age: 55 Year
  Sex: Female
  Weight: 47 kg

DRUGS (2)
  1. RIVOTRIL [Suspect]
     Active Substance: CLONAZEPAM
     Indication: INSOMNIA
  2. RIVOTRIL [Suspect]
     Active Substance: CLONAZEPAM
     Indication: DEPRESSION
     Route: 065
     Dates: start: 2011

REACTIONS (6)
  - Drug ineffective [Unknown]
  - Somnolence [Not Recovered/Not Resolved]
  - Road traffic accident [Unknown]
  - Intentional product misuse [Unknown]
  - Spinal fracture [Unknown]
  - Drug withdrawal syndrome [Unknown]
